FAERS Safety Report 23325010 (Version 1)
Quarter: 2023Q4

REPORT INFORMATION
  Report Type: Spontaneous
  Country: US (occurrence: US)
  Receive Date: 20231221
  Receipt Date: 20231221
  Transmission Date: 20240110
  Serious: No
  Sender: FDA-Public Use
  Company Number: US-HBP-2023US030229

PATIENT
  Age: 60 Year
  Sex: Male

DRUGS (4)
  1. MECHLORETHAMINE [Suspect]
     Active Substance: MECHLORETHAMINE
     Indication: Cutaneous T-cell lymphoma stage IV
     Dosage: UNK, QD
     Route: 061
     Dates: start: 20200826, end: 20210321
  2. MOGAMULIZUMAB [Suspect]
     Active Substance: MOGAMULIZUMAB
     Indication: Cutaneous T-cell lymphoma stage IV
     Dosage: UNK, 1/WEEK
  3. MOGAMULIZUMAB [Suspect]
     Active Substance: MOGAMULIZUMAB
     Dosage: UNK, Q2WK
  4. MOGAMULIZUMAB [Suspect]
     Active Substance: MOGAMULIZUMAB
     Dosage: UNK, UNKNOWN

REACTIONS (4)
  - Drug eruption [Unknown]
  - Off label use [Unknown]
  - Pruritus [Recovered/Resolved]
  - Therapy partial responder [Unknown]

NARRATIVE: CASE EVENT DATE: 20200826
